FAERS Safety Report 19471403 (Version 1)
Quarter: 2021Q2

REPORT INFORMATION
  Report Type: Other
  Country: FR (occurrence: FR)
  Receive Date: 20210629
  Receipt Date: 20210629
  Transmission Date: 20210717
  Serious: Yes (Death, Other)
  Sender: FDA-Public Use
  Company Number: FR-ROCHE-2718701

PATIENT
  Age: 77 Year
  Sex: Male
  Weight: 94 kg

DRUGS (22)
  1. TAZOCILLINE [Concomitant]
     Active Substance: PIPERACILLIN SODIUM\TAZOBACTAM SODIUM
     Dates: start: 20200706, end: 20200722
  2. STILNOX [Concomitant]
     Active Substance: ZOLPIDEM TARTRATE
     Dates: start: 20200701, end: 20200722
  3. SOLUPRED (FRANCE) [Concomitant]
     Active Substance: PREDNISOLONE SODIUM METAZOATE
     Dates: start: 20200128, end: 20200305
  4. DOLIPRANE [Concomitant]
     Active Substance: ACETAMINOPHEN
     Dates: start: 20200727, end: 20200803
  5. APIXABAN [Concomitant]
     Active Substance: APIXABAN
     Dates: start: 201912
  6. CIPROFLOXACINE [Concomitant]
     Active Substance: CIPROFLOXACIN
     Dates: start: 20200707, end: 20200722
  7. G?CSF [Concomitant]
     Active Substance: GRANULOCYTE COLONY-STIMULATING FACTOR NOS
  8. FUROSEMIDE. [Concomitant]
     Active Substance: FUROSEMIDE
     Dates: start: 201912
  9. PLAVIX [Concomitant]
     Active Substance: CLOPIDOGREL BISULFATE
     Dates: end: 20191220
  10. ATORVASTATINE [Concomitant]
     Active Substance: ATORVASTATIN
     Dates: start: 20200205, end: 20200207
  11. LOSARTAN. [Concomitant]
     Active Substance: LOSARTAN
     Dates: start: 20200205, end: 20200207
  12. NIVESTIM [Concomitant]
     Active Substance: FILGRASTIM
  13. FINASTERIDE. [Concomitant]
     Active Substance: FINASTERIDE
     Dates: start: 20200701, end: 20200722
  14. EUPANTOL [Concomitant]
     Active Substance: PANTOPRAZOLE SODIUM
     Dates: start: 20200128
  15. SOLUPRED (FRANCE) [Concomitant]
     Active Substance: PREDNISOLONE SODIUM METAZOATE
     Dates: start: 20200324, end: 202006
  16. BISOPROLOL [Concomitant]
     Active Substance: BISOPROLOL
     Dates: start: 20200205, end: 20200207
  17. ATEZOLIZUMAB. [Suspect]
     Active Substance: ATEZOLIZUMAB
     Indication: NON-SMALL CELL LUNG CANCER
     Dosage: SUBSEQUENT DOSE ON: 31/DEC/2019, 21/JAN/2020, 12/FEB/2020, 03/MAR/2020, 24/MAR/2020 14/APR/2020, 05/
     Route: 041
     Dates: start: 20191210
  18. AMIKACIN. [Concomitant]
     Active Substance: AMIKACIN
     Dates: start: 20200711, end: 20200722
  19. VESICARE [Concomitant]
     Active Substance: SOLIFENACIN SUCCINATE
     Dates: start: 20200701, end: 20200722
  20. XATRAL [Concomitant]
     Active Substance: ALFUZOSIN
     Dates: start: 20200701, end: 20200722
  21. SOLUPRED (FRANCE) [Concomitant]
     Active Substance: PREDNISOLONE SODIUM METAZOATE
     Dates: start: 20200205, end: 20200207
  22. MORPHINE [Concomitant]
     Active Substance: MORPHINE
     Dates: start: 20200727, end: 20200803

REACTIONS (2)
  - Interstitial lung disease [Not Recovered/Not Resolved]
  - Calculus urinary [Recovered/Resolved]

NARRATIVE: CASE EVENT DATE: 20200407
